FAERS Safety Report 8519474-X (Version None)
Quarter: 2012Q3

REPORT INFORMATION
  Report Type: 
  Country: None (occurrence: None)
  Receive Date: 20120718
  Receipt Date: 20120710
  Transmission Date: 20120928
  Serious: Yes (Life-Threatening, Hospitalization)
  Sender: FDA-Public Use
  Company Number: US-009507513-1207USA003493

PATIENT

DRUGS (3)
  1. REBETOL [Suspect]
  2. VICTRELIS [Suspect]
  3. PEG-INTRON [Suspect]
     Indication: HEPATITIS C
     Dosage: 1 DF, QW

REACTIONS (1)
  - PNEUMONIA [None]
